FAERS Safety Report 18832554 (Version 3)
Quarter: 2021Q2

REPORT INFORMATION
  Report Type: Spontaneous
  Country: RU (occurrence: RU)
  Receive Date: 20210203
  Receipt Date: 20210413
  Transmission Date: 20210717
  Serious: Yes (Other)
  Sender: FDA-Public Use
  Company Number: RU-BIOGEN-2021BI00973981

PATIENT
  Age: 32 Year
  Sex: Female
  Weight: 70 kg

DRUGS (1)
  1. TYSABRI [Suspect]
     Active Substance: NATALIZUMAB
     Indication: MULTIPLE SCLEROSIS
     Route: 065
     Dates: start: 20180208, end: 20201228

REACTIONS (1)
  - Xanthogranuloma [Unknown]

NARRATIVE: CASE EVENT DATE: 20201215
